FAERS Safety Report 25049900 (Version 1)
Quarter: 2025Q1

REPORT INFORMATION
  Report Type: Spontaneous
  Country: US (occurrence: None)
  Receive Date: 20250306
  Receipt Date: 20250306
  Transmission Date: 20250408
  Serious: Yes (Other)
  Sender: FDA-CTU
  Company Number: None

PATIENT
  Age: 32 Year
  Sex: Female
  Weight: 65.77 kg

DRUGS (2)
  1. CITALOPRAM [Suspect]
     Active Substance: CITALOPRAM
     Dates: start: 20210704
  2. ONDANSETRON [Suspect]
     Active Substance: ONDANSETRON
     Dates: start: 20210912, end: 20211205

REACTIONS (4)
  - Exposure during pregnancy [None]
  - Induced labour [None]
  - Retained placenta operation [None]
  - Uterine atony [None]

NARRATIVE: CASE EVENT DATE: 20220409
